FAERS Safety Report 18247190 (Version 3)
Quarter: 2020Q4

REPORT INFORMATION
  Report Type: Spontaneous
  Country: US (occurrence: US)
  Receive Date: 20200909
  Receipt Date: 20201026
  Transmission Date: 20210113
  Serious: Yes (Hospitalization, Other)
  Sender: FDA-Public Use
  Company Number: US-SA-2020SA240464

PATIENT

DRUGS (9)
  1. PIOGLITAZONE/METFORMIN [Concomitant]
     Dosage: 15-850 MG
  2. ATORVASTATIN [Concomitant]
     Active Substance: ATORVASTATIN
  3. GLIMEPIRIDE. [Suspect]
     Active Substance: GLIMEPIRIDE
     Dosage: UNK
     Route: 065
     Dates: end: 2020
  4. HYDROCHLOROTHIAZIDE/LISINOPRIL [Suspect]
     Active Substance: HYDROCHLOROTHIAZIDE\LISINOPRIL
     Dosage: UNK
     Route: 065
     Dates: end: 2020
  5. GOCOVRI [Suspect]
     Active Substance: AMANTADINE
     Dosage: 274 MG, HS
     Route: 048
     Dates: start: 20200714, end: 20200723
  6. GOCOVRI [Suspect]
     Active Substance: AMANTADINE
     Dosage: 137 MG, HS
     Route: 048
     Dates: start: 20200724
  7. GOCOVRI [Suspect]
     Active Substance: AMANTADINE
     Indication: DYSKINESIA
     Dosage: 137 MG, HS
     Route: 048
     Dates: start: 20200707, end: 20200713
  8. CARBIDOPA/LEVODOPA [Concomitant]
     Active Substance: CARBIDOPA\LEVODOPA
     Dosage: UNK
  9. VITAMIN B12 [VITAMIN B12 NOS] [Concomitant]
     Active Substance: CYANOCOBALAMIN
     Indication: SUPPLEMENTATION THERAPY

REACTIONS (9)
  - Aortic stenosis [Recovering/Resolving]
  - Transcatheter aortic valve implantation [Recovering/Resolving]
  - Product dose omission issue [Unknown]
  - Feeling jittery [Recovered/Resolved]
  - Nausea [Not Recovered/Not Resolved]
  - Renal impairment [Not Recovered/Not Resolved]
  - Hypoglycaemia [Recovered/Resolved]
  - Micturition frequency decreased [Recovered/Resolved]
  - Nervousness [Recovered/Resolved]

NARRATIVE: CASE EVENT DATE: 20200718
